FAERS Safety Report 5517872-X (Version None)
Quarter: 2007Q4

REPORT INFORMATION
  Report Type: 
  Country: None (occurrence: None)
  Receive Date: 20071113
  Receipt Date: 20071031
  Transmission Date: 20080405
  Serious: Yes (Death)
  Sender: FDA-Public Use
  Company Number: 163056USA

PATIENT
  Age: 8 Month
  Sex: Male

DRUGS (4)
  1. PROPOFOL [Suspect]
     Indication: GENERAL ANAESTHESIA
     Dosage: INTRAVENOUS DRIP
     Route: 041
  2. SEVOFLURANE [Suspect]
  3. FENTANYL [Suspect]
  4. ROCURONIUM BROMIDE [Suspect]
     Indication: GENERAL ANAESTHESIA

REACTIONS (21)
  - ACTIVATED PARTIAL THROMBOPLASTIN TIME PROLONGED [None]
  - ANURIA [None]
  - BLOOD CREATININE INCREASED [None]
  - BRADYCARDIA [None]
  - COAGULOPATHY [None]
  - END-TIDAL CO2 INCREASED [None]
  - GENERAL PHYSICAL HEALTH DETERIORATION [None]
  - HYPOCALCAEMIA [None]
  - HYPOKALAEMIA [None]
  - HYPOMAGNESAEMIA [None]
  - HYPOTENSION [None]
  - METABOLIC ACIDOSIS [None]
  - NO THERAPEUTIC RESPONSE [None]
  - PARTIAL SEIZURES [None]
  - POSTOPERATIVE FEVER [None]
  - PROCEDURAL COMPLICATION [None]
  - PROTHROMBIN TIME PROLONGED [None]
  - RENAL TUBULAR DISORDER [None]
  - RHABDOMYOLYSIS [None]
  - SEPSIS [None]
  - TACHYCARDIA [None]
